FAERS Safety Report 5534383-6 (Version None)
Quarter: 2007Q4

REPORT INFORMATION
  Report Type: 
  Country: None (occurrence: None)
  Receive Date: 20071205
  Receipt Date: 20071121
  Transmission Date: 20080405
  Serious: Yes (Other)
  Sender: FDA-Public Use
  Company Number: US-TYCO HEALTHCARE/MALLINCKRODT-T200701453

PATIENT

DRUGS (3)
  1. OXYCODONE HCL [Suspect]
     Indication: PAIN
     Dosage: 1/2 TABLET Q3H
     Route: 048
     Dates: start: 20071120, end: 20071120
  2. PERCOCET [Concomitant]
  3. OXYCODONE HCL [Concomitant]

REACTIONS (4)
  - HYPERSENSITIVITY [None]
  - PHARYNGEAL OEDEMA [None]
  - SKIN INJURY [None]
  - SWELLING FACE [None]
